FAERS Safety Report 8820410 (Version 3)
Quarter: 2013Q2

REPORT INFORMATION
  Report Type: Report from Study
  Country: JP (occurrence: JP)
  Receive Date: 20121002
  Receipt Date: 20130422
  Transmission Date: 20140414
  Serious: Yes (Other)
  Sender: FDA-Public Use
  Company Number: JP-009507513-1209JPN011619

PATIENT
  Age: 47 Year
  Sex: Male
  Weight: 55 kg

DRUGS (13)
  1. PEGINTRON [Suspect]
     Indication: CHRONIC HEPATITIS C
     Dosage: 1.5 MICROGRAM PER KILOGRAM, QW
     Route: 058
     Dates: start: 20120713
  2. REBETOL [Suspect]
     Indication: CHRONIC HEPATITIS C
     Dosage: 600 MG, QD
     Route: 048
     Dates: start: 20120713, end: 20120802
  3. REBETOL [Suspect]
     Dosage: 400 MG, QD
     Route: 048
     Dates: start: 20120803, end: 20120906
  4. REBETOL [Suspect]
     Dosage: 200 MG, QD
     Route: 048
     Dates: start: 20120907, end: 20121129
  5. REBETOL [Suspect]
     Dosage: 400 MG, QD
     Route: 048
     Dates: start: 20121130
  6. TELAVIC [Suspect]
     Indication: CHRONIC HEPATITIS C
     Dosage: 2250 MG, QD
     Route: 048
     Dates: start: 20120713, end: 20121005
  7. PREDNISOLONE [Concomitant]
     Dosage: 20 MG, QD
     Route: 048
     Dates: start: 20120717
  8. PREDNISOLONE [Concomitant]
     Dosage: 10 MG, QD
     Route: 048
     Dates: start: 20120831, end: 20121004
  9. PREDNISOLONE [Concomitant]
     Dosage: 5 MG, QD
     Route: 048
     Dates: start: 20121005, end: 20121011
  10. ALLELOCK [Concomitant]
     Dosage: 5 MG, QD
     Route: 048
     Dates: start: 20120717
  11. ANTEBATE [Concomitant]
     Dosage: UNK
     Route: 061
     Dates: start: 20120717, end: 20121005
  12. LOCOID [Concomitant]
     Dosage: UNK
     Route: 061
     Dates: start: 20120717, end: 20121005
  13. ALOSITOL [Concomitant]
     Dosage: 200 MG, QD
     Route: 048
     Dates: start: 20120717, end: 20121005

REACTIONS (1)
  - Rash [Recovered/Resolved]
